FAERS Safety Report 9885002 (Version 1)
Quarter: 2014Q1

REPORT INFORMATION
  Report Type: Spontaneous
  Country: JP (occurrence: JP)
  Receive Date: 20140210
  Receipt Date: 20140210
  Transmission Date: 20141002
  Serious: Yes (Other)
  Sender: FDA-Public Use
  Company Number: JP-TEVA-460327ISR

PATIENT
  Age: 67 Year
  Sex: Female

DRUGS (6)
  1. CARBOPLATIN [Suspect]
     Dosage: RECEIVED 3950MG OVER 9 CYCLES
     Route: 065
  2. NEDAPLATIN [Suspect]
     Indication: OVARIAN CANCER RECURRENT
     Dosage: 80MG/M2 IN 500ML NORMAL SALINE OVER 2H; RECEIVED TOTAL 140MG OVER 2 CYCLES
     Route: 041
  3. PACLITAXEL [Concomitant]
     Indication: OVARIAN CANCER RECURRENT
     Dosage: 175MG/M2 IN 500ML NORMAL SALINE OVER 3H
     Route: 041
  4. DEXAMETHASONE [Concomitant]
     Indication: PREMEDICATION
     Dosage: 20MG
     Route: 065
  5. DIPHENHYDRAMINE [Concomitant]
     Indication: PREMEDICATION
     Dosage: 50MG
     Route: 065
  6. RANITIDINE [Concomitant]
     Indication: PREMEDICATION
     Dosage: 50MG
     Route: 065

REACTIONS (1)
  - Drug hypersensitivity [Unknown]
